FAERS Safety Report 6722711-5 (Version None)
Quarter: 2010Q2

REPORT INFORMATION
  Report Type: 
  Country: None (occurrence: None)
  Receive Date: 20100512
  Receipt Date: 20100430
  Transmission Date: 20101027
  Serious: Yes (Hospitalization)
  Sender: FDA-Public Use
  Company Number: DE-AMGEN-US395060

PATIENT
  Sex: Female

DRUGS (12)
  1. ENBREL [Suspect]
     Indication: RHEUMATOID ARTHRITIS
     Route: 058
     Dates: start: 20090206, end: 20100423
  2. ENBREL [Suspect]
     Route: 058
     Dates: start: 20081017, end: 20081205
  3. FALITHROM [Concomitant]
     Dosage: UNKNOWN
     Dates: start: 20090101
  4. BISOPROLOL [Concomitant]
     Dosage: UNKNOWN
     Route: 048
     Dates: end: 20081101
  5. BISOPROLOL [Concomitant]
     Route: 048
     Dates: start: 20081101, end: 20090101
  6. BISOPROLOL [Concomitant]
     Route: 048
     Dates: start: 20090101, end: 20090201
  7. BISOPROLOL [Concomitant]
     Route: 048
     Dates: start: 20090201
  8. AMIODARONE HYDROCHLORIDE [Concomitant]
     Route: 048
     Dates: start: 20090101, end: 20090201
  9. ARAVA [Concomitant]
     Dosage: UNKNOWN
  10. PANTOZOL [Concomitant]
     Dosage: UNKNOWN
  11. RAMIPRIL [Concomitant]
     Dosage: UNKNOWN
  12. FENTANYL [Concomitant]
     Dosage: UNKNOWN

REACTIONS (2)
  - ATRIAL FIBRILLATION [None]
  - TACHYARRHYTHMIA [None]
